FAERS Safety Report 23229855 (Version 1)
Quarter: 2023Q4

REPORT INFORMATION
  Report Type: Spontaneous
  Country: US (occurrence: None)
  Receive Date: 20231127
  Receipt Date: 20231127
  Transmission Date: 20240110
  Serious: No
  Sender: FDA-Public Use
  Company Number: US-ROCHE-3392185

PATIENT
  Age: 92 Year
  Sex: Female
  Weight: 53.572 kg

DRUGS (2)
  1. LUCENTIS [Suspect]
     Active Substance: RANIBIZUMAB
     Indication: Macular degeneration
     Dosage: RIGHT EYE?ON 14/JUN/2023 SHE RECEIVED HER MOST RECENT INJECTION
     Route: 065
  2. AMLODIPINE [Concomitant]
     Active Substance: AMLODIPINE BESYLATE
     Indication: Hypertension

REACTIONS (2)
  - Vision blurred [Recovering/Resolving]
  - Off label use [Unknown]
